FAERS Safety Report 6209644-8 (Version None)
Quarter: 2009Q2

REPORT INFORMATION
  Report Type: 
  Country: None (occurrence: None)
  Receive Date: 20090601
  Receipt Date: 20090528
  Transmission Date: 20091009
  Serious: Yes (Life-Threatening)
  Sender: FDA-Public Use
  Company Number: AU-ASTRAZENECA-2009AP03331

PATIENT
  Age: 39 Year
  Sex: Male

DRUGS (3)
  1. PROPOFOL [Suspect]
     Route: 042
  2. FENTANYL [Suspect]
     Route: 040
  3. ISOFLURANE [Suspect]

REACTIONS (1)
  - RESPIRATORY ARREST [None]
